FAERS Safety Report 14589483 (Version 3)
Quarter: 2018Q1

REPORT INFORMATION
  Report Type: Spontaneous
  Country: US (occurrence: US)
  Receive Date: 20180302
  Receipt Date: 20180313
  Transmission Date: 20180509
  Serious: Yes (Congenital Anomaly)
  Sender: FDA-Public Use
  Company Number: US-AMGEN-US178943

PATIENT
  Sex: Male

DRUGS (3)
  1. ENBREL [Suspect]
     Active Substance: ETANERCEPT
     Dosage: 25 MG, 2 TIMES/WK
     Route: 064
  2. NAPROXEN. [Concomitant]
     Active Substance: NAPROXEN
     Indication: EXPOSURE DURING PREGNANCY
     Dosage: UNK, AS NECESSARY
     Route: 064
  3. ENBREL [Suspect]
     Active Substance: ETANERCEPT
     Indication: EXPOSURE DURING PREGNANCY
     Dosage: 50 MG, 2 TIMES/WK
     Route: 064

REACTIONS (6)
  - Hypospadias [Unknown]
  - Product prescribing issue [Unknown]
  - VACTERL syndrome [Unknown]
  - Atrial septal defect [Unknown]
  - Wheezing [Unknown]
  - Maternal exposure during pregnancy [Unknown]
